FAERS Safety Report 7896195-8 (Version None)
Quarter: 2011Q4

REPORT INFORMATION
  Report Type: 
  Country: None (occurrence: None)
  Receive Date: 20111106
  Receipt Date: 20110907
  Transmission Date: 20120403
  Serious: No
  Sender: FDA-Public Use
  Company Number: US-AMGEN-USASP2011045759

PATIENT
  Age: 33 Year
  Sex: Male

DRUGS (3)
  1. ENBREL [Suspect]
     Indication: ANKYLOSING SPONDYLITIS
     Dosage: 50 MG, QWK
     Dates: start: 20101201
  2. METHOTREXATE [Concomitant]
     Dosage: UNK
  3. TESTOSTERONE [Concomitant]
     Dosage: UNK

REACTIONS (1)
  - INJECTION SITE PAIN [None]
